FAERS Safety Report 4906174-8 (Version None)
Quarter: 2006Q1

REPORT INFORMATION
  Report Type: 
  Country: None (occurrence: None)
  Receive Date: 20060207
  Receipt Date: 20060126
  Transmission Date: 20060701
  Serious: Yes (Death, Other)
  Sender: FDA-Public Use
  Company Number: 2006013762

PATIENT
  Age: 68 Year
  Sex: Female

DRUGS (2)
  1. DILANTIN KAPSEAL [Suspect]
     Indication: CONVULSION
     Dosage: 100 MG, ORAL
     Route: 048
     Dates: start: 20050101, end: 20060101
  2. CIPROFLOXACIN [Suspect]
     Indication: ILL-DEFINED DISORDER

REACTIONS (5)
  - CONDITION AGGRAVATED [None]
  - MOUTH ULCERATION [None]
  - RESPIRATORY FAILURE [None]
  - SHOCK [None]
  - STEVENS-JOHNSON SYNDROME [None]
